FAERS Safety Report 25873557 (Version 1)
Quarter: 2025Q4

REPORT INFORMATION
  Report Type: Report from Study
  Country: US (occurrence: US)
  Receive Date: 20251002
  Receipt Date: 20251002
  Transmission Date: 20260117
  Serious: Yes (Death, Other)
  Sender: ALEXION PHARMACEUTICALS
  Company Number: US-AstraZeneca-CH-00962232A

PATIENT
  Age: 81 Year
  Sex: Male

DRUGS (2)
  1. FASENRA [Suspect]
     Active Substance: BENRALIZUMAB
     Dosage: UNK
     Route: 065
  2. FASENRA [Suspect]
     Active Substance: BENRALIZUMAB

REACTIONS (2)
  - Death [Fatal]
  - Cardiac failure [Unknown]

NARRATIVE: CASE EVENT DATE: 20250609
